FAERS Safety Report 8990911 (Version 1)
Quarter: 2012Q4

REPORT INFORMATION
  Report Type: Spontaneous
  Country: IT (occurrence: None)
  Receive Date: 20121221
  Receipt Date: 20121221
  Transmission Date: 20130627
  Serious: Yes (Hospitalization, Other)
  Sender: FDA-Public Use
  Company Number: 2012P1067046

PATIENT
  Age: 63 Year
  Sex: Female

DRUGS (1)
  1. LEVOFLOXACIN [Suspect]
     Indication: HEMORRHAGIC CYSTITIS

REACTIONS (5)
  - Status epilepticus [None]
  - Pyrexia [None]
  - White matter lesion [None]
  - White blood cell count increased [None]
  - Renal failure [None]
